FAERS Safety Report 12621003 (Version 1)
Quarter: 2016Q3

REPORT INFORMATION
  Report Type: Spontaneous
  Country: US (occurrence: None)
  Receive Date: 20160803
  Receipt Date: 20160803
  Transmission Date: 20161109
  Serious: No
  Sender: FDA-Public Use
  Company Number: None

PATIENT
  Sex: Female
  Weight: 22.23 kg

DRUGS (5)
  1. OXYBUTYNIN 5MG/5 ML SYRUP [Suspect]
     Active Substance: OXYBUTYNIN
     Indication: URINARY INCONTINENCE
     Route: 048
     Dates: start: 20160318, end: 20160427
  2. PLUS ANIMAL PARADE GOLD CHILDREN^S CHEWABLE MULTI-VITAMIN + MINERAL SUPPLEMENT [Concomitant]
  3. OMNIBLUE OCEAN MINERALS [Concomitant]
  4. GARDEN OF LIFE RAW PROBIOTICS KIDS [Concomitant]
  5. BARLEAN^S FRESH FLAX OIL [Concomitant]

REACTIONS (5)
  - Eating disorder [None]
  - Feeling hot [None]
  - Abnormal behaviour [None]
  - Hyperventilation [None]
  - Erythema [None]
